FAERS Safety Report 25929008 (Version 1)
Quarter: 2025Q4

REPORT INFORMATION
  Report Type: Spontaneous
  Country: CN (occurrence: CN)
  Receive Date: 20251016
  Receipt Date: 20251016
  Transmission Date: 20260117
  Serious: Yes (Other)
  Sender: RANBAXY
  Company Number: CN-SUN PHARMACEUTICAL INDUSTRIES LTD-2025R1-531644

PATIENT
  Age: 29 Year
  Sex: Male

DRUGS (1)
  1. INDOMETHACIN [Suspect]
     Active Substance: INDOMETHACIN
     Indication: Eosinophilic pustular folliculitis
     Dosage: 50 MILLIGRAM, BID
     Route: 048

REACTIONS (3)
  - Disease recurrence [Recovered/Resolved]
  - Condition aggravated [Unknown]
  - Dyspepsia [Recovered/Resolved]
